FAERS Safety Report 13374641 (Version 1)
Quarter: 2017Q1

REPORT INFORMATION
  Report Type: Report from Study
  Country: BR (occurrence: BR)
  Receive Date: 20170327
  Receipt Date: 20170327
  Transmission Date: 20170429
  Serious: Yes (Hospitalization, Other)
  Sender: FDA-Public Use
  Company Number: BR-BAYER-2016-223370

PATIENT
  Age: 26 Year
  Sex: Male

DRUGS (1)
  1. BETAFERON [Suspect]
     Active Substance: INTERFERON BETA-1B
     Indication: RELAPSING-REMITTING MULTIPLE SCLEROSIS
     Dosage: UNK
     Route: 058
     Dates: start: 201507, end: 20170315

REACTIONS (12)
  - Multiple sclerosis relapse [Not Recovered/Not Resolved]
  - Product use issue [None]
  - Hypoaesthesia [Not Recovered/Not Resolved]
  - Malaise [Not Recovered/Not Resolved]
  - Thermoanaesthesia [Recovered/Resolved]
  - Multiple sclerosis [None]
  - Multiple sclerosis relapse [Recovered/Resolved]
  - Dizziness [Not Recovered/Not Resolved]
  - Injection site pain [None]
  - Medical procedure [None]
  - Influenza like illness [Not Recovered/Not Resolved]
  - Inflammation [None]

NARRATIVE: CASE EVENT DATE: 201507
